FAERS Safety Report 16816054 (Version 1)
Quarter: 2019Q3

REPORT INFORMATION
  Report Type: Spontaneous
  Country: FR (occurrence: FR)
  Receive Date: 20190917
  Receipt Date: 20190917
  Transmission Date: 20191005
  Serious: Yes (Other)
  Sender: FDA-Public Use
  Company Number: FR-BAYER-2019-169484

PATIENT
  Age: 66 Year
  Sex: Male

DRUGS (8)
  1. NEXAVAR [Suspect]
     Active Substance: SORAFENIB
     Indication: HEPATOCELLULAR CARCINOMA
     Dosage: 800 MG, UNK
     Dates: end: 200811
  2. NEXAVAR [Suspect]
     Active Substance: SORAFENIB
     Indication: HEPATOCELLULAR CARCINOMA
     Dosage: 400 UNK
     Dates: start: 201609
  3. SUNITINIB [Concomitant]
     Active Substance: SUNITINIB
     Indication: SKIN TOXICITY
     Dosage: 37.5 MG/DAY
     Dates: start: 200811
  4. NEXAVAR [Suspect]
     Active Substance: SORAFENIB
     Indication: HEPATOCELLULAR CARCINOMA
     Dosage: 400 MG, QD
     Dates: start: 200808
  5. SUNITINIB [Concomitant]
     Active Substance: SUNITINIB
     Indication: SKIN TOXICITY
     Dosage: UNK
     Dates: start: 201207
  6. NEXAVAR [Suspect]
     Active Substance: SORAFENIB
     Indication: HEPATOCELLULAR CARCINOMA
     Dosage: 800 MG, QD
     Dates: start: 200807, end: 200807
  7. NEXAVAR [Suspect]
     Active Substance: SORAFENIB
     Indication: HEPATOCELLULAR CARCINOMA
     Dosage: 600 MG, UNK
  8. SUNITINIB [Concomitant]
     Active Substance: SUNITINIB
     Indication: SKIN TOXICITY
     Dosage: 25 MG/DAY
     Dates: end: 201202

REACTIONS (6)
  - Pyrexia [None]
  - Drug tolerance decreased [None]
  - Hepatocellular carcinoma [None]
  - Pyrexia [Recovering/Resolving]
  - Muscle spasms [None]
  - Diarrhoea [None]
